FAERS Safety Report 10037258 (Version 3)
Quarter: 2015Q1

REPORT INFORMATION
  Report Type: Spontaneous
  Country: US (occurrence: US)
  Receive Date: 20140326
  Receipt Date: 20150205
  Transmission Date: 20150720
  Serious: Yes (Hospitalization)
  Sender: FDA-Public Use
  Company Number: US-BAYER-2014-044871

PATIENT
  Age: 39 Year
  Sex: Female
  Weight: 90.7 kg

DRUGS (6)
  1. ADVIL [Concomitant]
     Active Substance: IBUPROFEN
     Indication: MUSCLE SPASMS
     Dosage: UNK
     Dates: start: 20060917, end: 20060923
  2. CYMBALTA [Concomitant]
     Active Substance: DULOXETINE HYDROCHLORIDE
     Indication: DEPRESSION
     Dosage: UNK
     Dates: start: 2000
  3. YASMIN [Suspect]
     Active Substance: DROSPIRENONE\ETHINYL ESTRADIOL
     Indication: PREMENSTRUAL SYNDROME
     Dosage: UNK
     Dates: start: 1997, end: 2006
  4. ZOLOFT [Concomitant]
     Active Substance: SERTRALINE HYDROCHLORIDE
  5. MOTRIN [Concomitant]
     Active Substance: IBUPROFEN
     Indication: MUSCLE SPASMS
     Dosage: UNK
     Dates: start: 20060917, end: 20060923
  6. BUSPAR [Concomitant]
     Active Substance: BUSPIRONE HYDROCHLORIDE

REACTIONS (9)
  - Depression [None]
  - Fatigue [None]
  - Cerebrovascular accident [None]
  - Headache [None]
  - Injury [None]
  - Fear of disease [None]
  - Pain [None]
  - Brain injury [None]
  - Hypoaesthesia oral [None]

NARRATIVE: CASE EVENT DATE: 20060922
